FAERS Safety Report 8187238-5 (Version None)
Quarter: 2012Q1

REPORT INFORMATION
  Report Type: 
  Country: None (occurrence: None)
  Receive Date: 20120302
  Receipt Date: 20120216
  Transmission Date: 20120608
  Serious: No
  Sender: FDA-Public Use
  Company Number: 2012P005713

PATIENT
  Age: 32 Year
  Sex: Female

DRUGS (5)
  1. SYCREST (ASENAPINE/05706901/) [Suspect]
     Indication: BIPOLAR DISORDER
     Dosage: 10 MG; BID; SL
     Route: 060
     Dates: start: 20120127, end: 20120131
  2. QUETIAPINE [Concomitant]
  3. OLANZAPINE [Concomitant]
  4. BENZODIAZEPINE [Concomitant]
  5. VALPROATE SODIUM [Concomitant]

REACTIONS (7)
  - HYPOAESTHESIA ORAL [None]
  - NERVOUS SYSTEM DISORDER [None]
  - THOUGHT BLOCKING [None]
  - FEELING ABNORMAL [None]
  - LARYNX IRRITATION [None]
  - HYPOTENSION [None]
  - MANIA [None]
